FAERS Safety Report 8350933-9 (Version None)
Quarter: 2012Q2

REPORT INFORMATION
  Report Type: 
  Country: None (occurrence: None)
  Receive Date: 20120510
  Receipt Date: 20120427
  Transmission Date: 20120825
  Serious: Yes (Hospitalization)
  Sender: FDA-Public Use
  Company Number: US-ENDO PHARMACEUTICALS INC.-MSER20120014

PATIENT
  Sex: Female
  Weight: 117.2 kg

DRUGS (11)
  1. PERCOCET [Suspect]
     Indication: ARTHRALGIA
     Dosage: UNKNOWN
     Route: 048
  2. METOPROLOL TARTRATE [Concomitant]
     Indication: HYPERTENSION
     Route: 048
  3. LISINOPRIL [Concomitant]
     Indication: HYPERTENSION
     Route: 048
  4. MORPHINE SULFATE [Suspect]
     Route: 048
  5. OXYCONTIN [Suspect]
     Indication: PAIN
     Dosage: UNKNOWN
     Route: 065
  6. HUMULIN 70/30 [Concomitant]
     Indication: DIABETES MELLITUS
     Route: 058
  7. REMERON [Concomitant]
     Indication: PRODUCT USED FOR UNKNOWN INDICATION
     Route: 048
  8. NAPROXEN [Concomitant]
     Indication: PRODUCT USED FOR UNKNOWN INDICATION
     Dosage: UNKNOWN
     Route: 065
  9. MORPHINE SULFATE [Suspect]
     Indication: ARTHRALGIA
     Route: 048
  10. SULFAMETHOXAZOLE [Concomitant]
     Indication: PRODUCT USED FOR UNKNOWN INDICATION
     Dosage: UNKNOWN
     Route: 065
  11. NYSTOP [Concomitant]
     Indication: PRODUCT USED FOR UNKNOWN INDICATION
     Dosage: UNKNOWN
     Route: 065

REACTIONS (8)
  - HYPOMAGNESAEMIA [None]
  - IMPAIRED GASTRIC EMPTYING [None]
  - RENAL FAILURE ACUTE [None]
  - HYPOKALAEMIA [None]
  - URINARY TRACT INFECTION [None]
  - DRUG DEPENDENCE [None]
  - URINARY RETENTION [None]
  - MENTAL STATUS CHANGES [None]
